FAERS Safety Report 24833155 (Version 1)
Quarter: 2025Q1

REPORT INFORMATION
  Report Type: Spontaneous
  Country: US (occurrence: US)
  Receive Date: 20250111
  Receipt Date: 20250111
  Transmission Date: 20250409
  Serious: Yes (Other)
  Sender: GLENMARK
  Company Number: US-MLMSERVICE-20241226-PI326161-00306-1

PATIENT

DRUGS (1)
  1. TACROLIMUS [Suspect]
     Active Substance: TACROLIMUS
     Indication: Immunosuppressant drug therapy
     Route: 065

REACTIONS (5)
  - Kaposi^s sarcoma [Unknown]
  - Metastases to bone [Unknown]
  - Gastric mucosa erythema [Unknown]
  - Vocal cord haemorrhage [Unknown]
  - Granuloma [Unknown]
